FAERS Safety Report 10064000 (Version 1)
Quarter: 2014Q2

REPORT INFORMATION
  Report Type: Report from Study
  Country: DE (occurrence: DE)
  Receive Date: 20140408
  Receipt Date: 20140408
  Transmission Date: 20141212
  Serious: Yes (Hospitalization)
  Sender: FDA-Public Use
  Company Number: DE-ROCHE-1377233

PATIENT
  Age: 61 Year
  Sex: Female
  Weight: 82 kg

DRUGS (6)
  1. BEVACIZUMAB [Suspect]
     Indication: NON-SMALL CELL LUNG CANCER
     Route: 042
     Dates: start: 20131125, end: 20131125
  2. CISPLATIN [Suspect]
     Indication: NON-SMALL CELL LUNG CANCER
     Route: 065
     Dates: start: 20131125
  3. PEMETREXED [Suspect]
     Indication: NON-SMALL CELL LUNG CANCER
     Route: 065
     Dates: start: 20131125
  4. FORTECORTIN [Concomitant]
     Route: 048
     Dates: start: 20131124, end: 20131128
  5. FOLINIC ACID [Concomitant]
     Route: 048
     Dates: start: 20131118
  6. VITAMIN B12 [Concomitant]
     Route: 030
     Dates: start: 20131118, end: 20131118

REACTIONS (2)
  - Herpes zoster [Recovered/Resolved]
  - Superinfection bacterial [Recovering/Resolving]
